FAERS Safety Report 9688290 (Version 2)
Quarter: 2013Q4

REPORT INFORMATION
  Report Type: Spontaneous
  Country: AR (occurrence: AR)
  Receive Date: 20131114
  Receipt Date: 20131122
  Transmission Date: 20140711
  Serious: Yes (Other)
  Sender: FDA-Public Use
  Company Number: AR-AMGEN-ARGSP2013079087

PATIENT
  Sex: Male

DRUGS (1)
  1. NPLATE [Suspect]
     Indication: IMMUNE THROMBOCYTOPENIC PURPURA
     Dosage: 250 MUG, UNK
     Route: 065
     Dates: start: 201305

REACTIONS (1)
  - Therapeutic response decreased [Unknown]
